FAERS Safety Report 20718681 (Version 3)
Quarter: 2025Q4

REPORT INFORMATION
  Report Type: Report from Study
  Country: KR (occurrence: KR)
  Receive Date: 20220418
  Receipt Date: 20251001
  Transmission Date: 20260118
  Serious: Yes (Other)
  Sender: TAKEDA
  Company Number: KR-TAKEDA-2022TUS024958

PATIENT
  Age: 39 Year
  Sex: Female
  Weight: 71 kg

DRUGS (16)
  1. VEDOLIZUMAB [Suspect]
     Active Substance: VEDOLIZUMAB
     Indication: Colitis ulcerative
     Dosage: 300 MILLIGRAM
     Dates: start: 20210707, end: 20220126
  2. MESALAMINE [Concomitant]
     Active Substance: MESALAMINE
     Indication: Colitis ulcerative
     Dosage: 4.8 GRAM, QD
     Dates: start: 20200311
  3. ASACOL [Concomitant]
     Active Substance: MESALAMINE
     Indication: Colitis ulcerative
     Dosage: 500 MILLIGRAM, QD
     Dates: start: 20200311
  4. Azabio [Concomitant]
     Indication: Colitis ulcerative
     Dosage: 150 MILLIGRAM, QD
     Dates: start: 20210224
  5. Solondo [Concomitant]
     Indication: Colitis ulcerative
     Dosage: 30 MILLIGRAM
     Dates: start: 20210121, end: 20210127
  6. Solondo [Concomitant]
     Dosage: 27.5 MILLIGRAM, QD
     Dates: start: 20210128, end: 20210203
  7. Solondo [Concomitant]
     Dosage: 25 MILLIGRAM, QD
     Dates: start: 20210204, end: 20210210
  8. Solondo [Concomitant]
     Dosage: 22.5 MILLIGRAM, QD
     Dates: start: 20210211, end: 20210217
  9. Solondo [Concomitant]
     Dosage: 20 MILLIGRAM, QD
     Dates: start: 20210218, end: 20210224
  10. Solondo [Concomitant]
     Dosage: 17.5 MILLIGRAM, QD
     Dates: start: 20210225, end: 20210303
  11. Solondo [Concomitant]
     Dosage: 15 MILLIGRAM, QD
     Dates: start: 20210304, end: 20210310
  12. Solondo [Concomitant]
     Dosage: 12.5 MILLIGRAM, QD
     Dates: start: 20210311, end: 20210317
  13. Solondo [Concomitant]
     Dosage: 10 MILLIGRAM, QD
     Dates: start: 20210318, end: 20210324
  14. Solondo [Concomitant]
     Dosage: 7.5 MILLIGRAM, QD
     Dates: start: 20210325, end: 20210331
  15. Solondo [Concomitant]
     Dosage: 5 MILLIGRAM, QD
     Dates: start: 20210401, end: 20210407
  16. Solondo [Concomitant]
     Dosage: 2.5 MILLIGRAM, QD
     Dates: start: 20210408, end: 20210414

REACTIONS (1)
  - Gestational diabetes [Recovered/Resolved]

NARRATIVE: CASE EVENT DATE: 20220105
